FAERS Safety Report 6215019-8 (Version None)
Quarter: 2009Q2

REPORT INFORMATION
  Report Type: 
  Country: None (occurrence: None)
  Receive Date: 20090604
  Receipt Date: 20080911
  Transmission Date: 20091009
  Serious: No
  Sender: FDA-Public Use
  Company Number: US-ASTRAZENECA-2008UW18902

PATIENT
  Age: 45 Year
  Sex: Female
  Weight: 126.6 kg

DRUGS (7)
  1. PRILOSEC [Suspect]
     Indication: GASTROOESOPHAGEAL REFLUX DISEASE
     Route: 048
  2. ZYRTEC [Concomitant]
  3. GLUCOSAMINE [Concomitant]
  4. ANTIVERT [Concomitant]
  5. ALDACTONE [Concomitant]
  6. BIRTH CONTROL PILLS [Concomitant]
  7. CRANBERRY [Concomitant]

REACTIONS (3)
  - CHOKING [None]
  - COUGH [None]
  - GASTROOESOPHAGEAL REFLUX DISEASE [None]
